FAERS Safety Report 5251285-3 (Version None)
Quarter: 2007Q1

REPORT INFORMATION
  Report Type: 
  Country: None (occurrence: None)
  Receive Date: 20070228
  Receipt Date: 20061229
  Transmission Date: 20070707
  Serious: No
  Sender: FDA-Public Use
  Company Number: US-GLAXOSMITHKLINE-A0632843A

PATIENT
  Age: 62 Year
  Sex: Male

DRUGS (7)
  1. LAMICTAL [Suspect]
     Indication: BIPOLAR DISORDER
     Dosage: 200MG PER DAY
     Route: 048
     Dates: start: 20051201
  2. NORVASC [Concomitant]
  3. METFORMIN HCL [Concomitant]
  4. CILOSTAZOL [Concomitant]
  5. METOPROLOL SUCCINATE [Concomitant]
  6. CARTIA XT [Concomitant]
  7. BUPROPION HCL [Concomitant]

REACTIONS (2)
  - NASAL DISCOMFORT [None]
  - RASH [None]
